FAERS Safety Report 7864157-2 (Version None)
Quarter: 2011Q4

REPORT INFORMATION
  Report Type: 
  Country: None (occurrence: None)
  Receive Date: 20111028
  Receipt Date: 20111024
  Transmission Date: 20120403
  Serious: Yes (Congenital Anomaly, Other)
  Sender: FDA-Public Use
  Company Number: US-PFIZER INC-2011257683

PATIENT

DRUGS (2)
  1. ZOLOFT [Suspect]
     Dosage: 50 MG, UNK
     Dates: start: 20010101
  2. ZOLOFT [Suspect]
     Dosage: 100 MG, UNK
     Dates: start: 20010101

REACTIONS (2)
  - CONGENITAL ANOMALY [None]
  - MATERNAL EXPOSURE DURING PREGNANCY [None]
